FAERS Safety Report 25714703 (Version 1)
Quarter: 2025Q3

REPORT INFORMATION
  Report Type: Spontaneous
  Country: TN (occurrence: TN)
  Receive Date: 20250822
  Receipt Date: 20250822
  Transmission Date: 20251021
  Serious: Yes (Hospitalization, Other)
  Sender: Unknown Manufacturer
  Company Number: TN-862174955-ML2025-04228

PATIENT
  Sex: Male

DRUGS (1)
  1. LEVOCETIRIZINE [Suspect]
     Active Substance: LEVOCETIRIZINE
     Indication: Pruritus
     Route: 064

REACTIONS (3)
  - Pancytopenia [Recovered/Resolved]
  - Petechiae [Recovered/Resolved]
  - Foetal exposure during pregnancy [Unknown]
